FAERS Safety Report 5002586-5 (Version None)
Quarter: 2006Q2

REPORT INFORMATION
  Report Type: 
  Country: None (occurrence: None)
  Receive Date: 20060510
  Receipt Date: 20060508
  Transmission Date: 20061013
  Serious: Yes (Other)
  Sender: FDA-Public Use
  Company Number: PTWYE586627APR06

PATIENT
  Age: 17 Month
  Sex: Male

DRUGS (2)
  1. TAZOBAC [Suspect]
     Indication: PSEUDOMONAL BACTERAEMIA
     Dosage: 100 MG/KG 1X PER 8 HR INTRAVENOUS; 4.5 G 1X PER 8  HR INTRAVENOUS
     Route: 042
     Dates: start: 20060401, end: 20060401
  2. TAZOBAC [Suspect]
     Indication: PSEUDOMONAL BACTERAEMIA
     Dosage: 100 MG/KG 1X PER 8 HR INTRAVENOUS; 4.5 G 1X PER 8  HR INTRAVENOUS
     Route: 042
     Dates: start: 20060401, end: 20060427

REACTIONS (2)
  - ACCIDENTAL OVERDOSE [None]
  - INCORRECT DOSE ADMINISTERED [None]
